FAERS Safety Report 7532993-8 (Version None)
Quarter: 2011Q2

REPORT INFORMATION
  Report Type: 
  Country: None (occurrence: None)
  Receive Date: 20110608
  Receipt Date: 20110530
  Transmission Date: 20111010
  Serious: Yes (Other)
  Sender: FDA-Public Use
  Company Number: CN-BAXTER-2011BH016752

PATIENT
  Sex: Male

DRUGS (3)
  1. PREDNISONE [Concomitant]
     Indication: GLOMERULONEPHRITIS MEMBRANOUS
     Route: 048
  2. CYCLOPHOSPHAMIDE [Suspect]
     Indication: OFF LABEL USE
     Route: 042
  3. CYCLOPHOSPHAMIDE [Suspect]
     Indication: GLOMERULONEPHRITIS MEMBRANOUS
     Route: 042

REACTIONS (1)
  - PROSTATE CANCER [None]
